FAERS Safety Report 11798954 (Version 1)
Quarter: 2015Q4

REPORT INFORMATION
  Report Type: Report from Study
  Country: US (occurrence: US)
  Receive Date: 20151203
  Receipt Date: 20151203
  Transmission Date: 20160305
  Serious: No
  Sender: FDA-Public Use
  Company Number: US-AMGEN-USASL2015116264

PATIENT
  Age: 76 Year
  Sex: Male

DRUGS (2)
  1. REPATHA [Suspect]
     Active Substance: EVOLOCUMAB
     Indication: PRODUCT USED FOR UNKNOWN INDICATION
     Dosage: UNK
     Route: 065
     Dates: start: 2015
  2. PLAVIX [Concomitant]
     Active Substance: CLOPIDOGREL BISULFATE

REACTIONS (8)
  - Arthralgia [Unknown]
  - Skin odour abnormal [Unknown]
  - Myalgia [Unknown]
  - Injection site bruising [Unknown]
  - Tooth disorder [Unknown]
  - Injection site swelling [Unknown]
  - Back pain [Unknown]
  - Dry mouth [Unknown]

NARRATIVE: CASE EVENT DATE: 2015
